FAERS Safety Report 5753001-5 (Version None)
Quarter: 2008Q2

REPORT INFORMATION
  Report Type: 
  Country: None (occurrence: None)
  Receive Date: 20080527
  Receipt Date: 20080514
  Transmission Date: 20081010
  Serious: Yes (Life-Threatening, Hospitalization)
  Sender: FDA-Public Use
  Company Number: 2008AL005315

PATIENT
  Age: 24 Year
  Sex: Female

DRUGS (7)
  1. SERTRALINE HYDROCHLORIDE [Suspect]
  2. CLOZAPINE [Concomitant]
  3. HYOSCINE [Concomitant]
  4. AMOXICILLIN [Concomitant]
  5. CLOZAPINE [Concomitant]
  6. MOCLOBEMIDE [Concomitant]
  7. SULPRIDE [Concomitant]

REACTIONS (6)
  - CONDITION AGGRAVATED [None]
  - LIVER FUNCTION TEST ABNORMAL [None]
  - LOSS OF CONSCIOUSNESS [None]
  - MULTIPLE DRUG OVERDOSE [None]
  - VOMITING [None]
  - WEIGHT DECREASED [None]
